FAERS Safety Report 14513230 (Version 1)
Quarter: 2018Q1

REPORT INFORMATION
  Report Type: Spontaneous
  Country: US (occurrence: US)
  Receive Date: 20180209
  Receipt Date: 20180209
  Transmission Date: 20180509
  Serious: No
  Sender: FDA-Public Use
  Company Number: US-ALLERGAN-1722619US

PATIENT
  Sex: Female

DRUGS (1)
  1. RESTASIS [Suspect]
     Active Substance: CYCLOSPORINE
     Indication: DRY EYE
     Dosage: 6 GTT, UNK
     Route: 047

REACTIONS (5)
  - Corneal erosion [Unknown]
  - Superficial injury of eye [Unknown]
  - Incorrect dose administered [Unknown]
  - Product packaging issue [Unknown]
  - Eye injury [Unknown]
